FAERS Safety Report 9372988 (Version 1)
Quarter: 2013Q2

REPORT INFORMATION
  Report Type: Spontaneous
  Country: US (occurrence: US)
  Receive Date: 20130627
  Receipt Date: 20130627
  Transmission Date: 20140414
  Serious: Yes (Hospitalization, Other)
  Sender: FDA-Public Use
  Company Number: US-BRISTOL-MYERS SQUIBB COMPANY-19034727

PATIENT
  Age: 69 Year
  Sex: Female
  Weight: 68.03 kg

DRUGS (3)
  1. BYETTA [Suspect]
     Indication: TYPE 2 DIABETES MELLITUS
  2. JANUMET [Suspect]
  3. TARCEVA [Concomitant]
     Dosage: TARCEVA PILLS

REACTIONS (3)
  - Pancreatic carcinoma [Recovering/Resolving]
  - Blood pressure abnormal [Unknown]
  - Blood glucose abnormal [Unknown]
